FAERS Safety Report 5658286-1 (Version None)
Quarter: 2008Q1

REPORT INFORMATION
  Report Type: 
  Country: None (occurrence: None)
  Receive Date: 20080310
  Receipt Date: 20070125
  Transmission Date: 20080703
  Serious: No
  Sender: FDA-Public Use
  Company Number: US-BAYER-200710293BCC

PATIENT
  Age: 70 Year
  Sex: Female
  Weight: 91 kg

DRUGS (10)
  1. ALEVE [Suspect]
     Indication: ARTHRALGIA
     Dosage: TOTAL DAILY DOSE: 220 MG  UNIT DOSE: 220 MG
     Route: 048
     Dates: start: 20070124
  2. ESTROGEN [Concomitant]
  3. PROVERA [Concomitant]
  4. UNIRETIC [Concomitant]
  5. RANITIDINE [Concomitant]
  6. CRESTOR [Concomitant]
  7. ZOLOFT [Concomitant]
  8. CYCLOBENZAPRINE HCL [Concomitant]
  9. DARVOCET [Concomitant]
  10. STORE BRAND MULTIVITAMIN [Concomitant]

REACTIONS (1)
  - FATIGUE [None]
